FAERS Safety Report 4928376-7 (Version None)
Quarter: 2006Q1

REPORT INFORMATION
  Report Type: 
  Country: None (occurrence: None)
  Receive Date: 20060228
  Receipt Date: 20050314
  Transmission Date: 20060701
  Serious: Yes (Hospitalization)
  Sender: FDA-Public Use
  Company Number: US-MERCK-0503USA02942

PATIENT
  Age: 73 Year
  Sex: Male
  Weight: 80 kg

DRUGS (10)
  1. VIOXX [Suspect]
     Indication: PAIN
     Route: 048
     Dates: start: 20000701, end: 20041001
  2. PROPRANOLOL HYDROCHLORIDE [Concomitant]
     Route: 065
  3. NEURONTIN [Concomitant]
     Route: 065
  4. PRILOSEC [Concomitant]
     Route: 065
  5. QUINIDINE [Concomitant]
     Route: 065
  6. ALLOPURINOL [Concomitant]
     Route: 065
  7. SYNTHROID [Concomitant]
     Route: 065
  8. ALLEGRA [Concomitant]
     Route: 065
  9. DIOVAN [Concomitant]
     Route: 065
  10. PLAVIX [Concomitant]
     Route: 065

REACTIONS (13)
  - ANAEMIA [None]
  - ASTHMA [None]
  - BLOOD GLUCOSE INCREASED [None]
  - CAROTID ARTERY STENOSIS [None]
  - CEREBROVASCULAR ACCIDENT [None]
  - CONTUSION [None]
  - EPISTAXIS [None]
  - FALL [None]
  - HYPERTENSION [None]
  - ORTHOSTATIC HYPOTENSION [None]
  - RADIUS FRACTURE [None]
  - SINUS TACHYCARDIA [None]
  - TRANSIENT ISCHAEMIC ATTACK [None]
